FAERS Safety Report 4478710-X (Version None)
Quarter: 2004Q3

REPORT INFORMATION
  Report Type: 
  Country: None (occurrence: None)
  Receive Date: 20040923
  Receipt Date: 20040811
  Transmission Date: 20050211
  Serious: No
  Sender: FDA-Public Use
  Company Number: USA040568409

PATIENT
  Age: 71 Year
  Sex: Female

DRUGS (9)
  1. FORTEO [Suspect]
     Indication: OSTEOPOROSIS
     Dosage: 20 UG DAY
     Dates: start: 20040402, end: 20040518
  2. NEXIUM [Concomitant]
  3. SYNTHROID [Concomitant]
  4. CENESTIN (ESTROGENS CONJUGATED) [Concomitant]
  5. CALCIUM [Concomitant]
  6. POTASSIUM [Concomitant]
  7. ZETIA (EZEIMIBE) [Concomitant]
  8. TRICOR [Concomitant]
  9. MIACALCIN [Concomitant]

REACTIONS (7)
  - ANXIETY [None]
  - ARTHRALGIA [None]
  - BLOOD CALCIUM INCREASED [None]
  - BLOOD GLUCOSE INCREASED [None]
  - FATIGUE [None]
  - MOBILITY DECREASED [None]
  - MUSCLE SPASMS [None]
